FAERS Safety Report 7623073-1 (Version None)
Quarter: 2011Q3

REPORT INFORMATION
  Report Type: 
  Country: None (occurrence: None)
  Receive Date: 20110720
  Receipt Date: 20110707
  Transmission Date: 20111222
  Serious: Yes (Other)
  Sender: FDA-Public Use
  Company Number: US-AMGEN-USASP2011002319

PATIENT
  Age: 29 Year
  Sex: Female

DRUGS (2)
  1. ENBREL [Suspect]
     Indication: ANKYLOSING SPONDYLITIS
     Dosage: 50 MG, QWK
     Route: 058
     Dates: start: 20050601
  2. CORTISOL                           /00014602/ [Concomitant]
     Dosage: UNK

REACTIONS (7)
  - PITUITARY TUMOUR RECURRENT [None]
  - PAIN [None]
  - SKIN STRIAE [None]
  - SWELLING [None]
  - FATIGUE [None]
  - ARTHRITIS [None]
  - ABASIA [None]
